FAERS Safety Report 4797385-3 (Version None)
Quarter: 2005Q4

REPORT INFORMATION
  Report Type: 
  Country: None (occurrence: None)
  Receive Date: 20051013
  Receipt Date: 20051004
  Transmission Date: 20060501
  Serious: Yes (Death, Other)
  Sender: FDA-Public Use
  Company Number: US-JNJFOC-20050902540

PATIENT
  Age: 41 Year
  Sex: Female

DRUGS (2)
  1. ASPIRIN [Suspect]
     Indication: SUICIDE ATTEMPT
     Route: 048
  2. SEROQUEL [Suspect]
     Indication: SUICIDE ATTEMPT
     Route: 048

REACTIONS (6)
  - COMA [None]
  - COMPLETED SUICIDE [None]
  - HYPERVENTILATION [None]
  - INTENTIONAL DRUG MISUSE [None]
  - METABOLIC ACIDOSIS [None]
  - PARALYSIS [None]
